FAERS Safety Report 5695386-4 (Version None)
Quarter: 2008Q2

REPORT INFORMATION
  Report Type: 
  Country: None (occurrence: None)
  Receive Date: 20080402
  Receipt Date: 20080228
  Transmission Date: 20081010
  Serious: Yes (Hospitalization)
  Sender: FDA-Public Use
  Company Number: 2008S1002645

PATIENT
  Age: 12 Year
  Sex: Female

DRUGS (1)
  1. BACLOFEN [Suspect]
     Dosage: ORAL
     Route: 048

REACTIONS (10)
  - BLOOD CREATINE PHOSPHOKINASE INCREASED [None]
  - BRADYCARDIA [None]
  - COLD SWEAT [None]
  - COMA [None]
  - DRUG TOXICITY [None]
  - ENCEPHALITIS [None]
  - MYDRIASIS [None]
  - OVERDOSE [None]
  - SINUSITIS [None]
  - VISUAL DISTURBANCE [None]
